FAERS Safety Report 6004100-4 (Version None)
Quarter: 2008Q4

REPORT INFORMATION
  Report Type: 
  Country: None (occurrence: None)
  Receive Date: 20081215
  Receipt Date: 20081215
  Transmission Date: 20090506
  Serious: Yes (Hospitalization, Other)
  Sender: FDA-Public Use
  Company Number: None

PATIENT
  Sex: Female
  Weight: 136.0791 kg

DRUGS (1)
  1. CYMBALTA [Suspect]
     Indication: DEPRESSION
     Dosage: 50MG 1X IN AM PO
     Route: 048
     Dates: start: 20070701, end: 20081201

REACTIONS (8)
  - DRUG WITHDRAWAL SYNDROME [None]
  - GINGIVAL PAIN [None]
  - HYPOAESTHESIA [None]
  - HYPOAESTHESIA ORAL [None]
  - HYPOAESTHESIA TEETH [None]
  - PAIN IN JAW [None]
  - PARAESTHESIA [None]
  - TOOTHACHE [None]
